FAERS Safety Report 6531979-X (Version None)
Quarter: 2010Q1

REPORT INFORMATION
  Report Type: 
  Country: None (occurrence: None)
  Receive Date: 20100107
  Receipt Date: 20100107
  Transmission Date: 20100710
  Serious: Yes (Other)
  Sender: FDA-Public Use
  Company Number: None

PATIENT
  Age: 44 Year
  Sex: Female
  Weight: 54.4316 kg

DRUGS (1)
  1. SINGULAIR [Suspect]
     Indication: ASTHMA
     Dosage: 10 MG ONCE A DAY PO
     Route: 048
     Dates: start: 20091015, end: 20091229

REACTIONS (4)
  - AGITATION [None]
  - IRRITABILITY [None]
  - MOOD ALTERED [None]
  - NIGHTMARE [None]
